FAERS Safety Report 9504974 (Version 2)
Quarter: 2013Q3

REPORT INFORMATION
  Report Type: Report from Study
  Country: IN (occurrence: IN)
  Receive Date: 20130906
  Receipt Date: 20130923
  Transmission Date: 20140515
  Serious: Yes (Death, Hospitalization)
  Sender: FDA-Public Use
  Company Number: IN-ACTAVIS-2013-15848

PATIENT
  Age: 39 Year
  Sex: Male
  Weight: 50 kg

DRUGS (2)
  1. TOPIRAMATE (WATSON LABORATORIES) [Suspect]
     Indication: PRODUCT USED FOR UNKNOWN INDICATION
     Dosage: 50 MG, UNKNOWN
     Route: 048
     Dates: start: 20130722, end: 20130825
  2. TOPAMAX [Suspect]
     Indication: PRODUCT USED FOR UNKNOWN INDICATION
     Dosage: UNK, UNKNOWN
     Route: 048
     Dates: start: 20130722, end: 20130825

REACTIONS (4)
  - Pyrexia [Fatal]
  - Oedema peripheral [Fatal]
  - Skin erosion [Fatal]
  - Skin discolouration [Fatal]
